FAERS Safety Report 18247937 (Version 1)
Quarter: 2020Q3

REPORT INFORMATION
  Report Type: Report from Study
  Country: DE (occurrence: DE)
  Receive Date: 20200909
  Receipt Date: 20200909
  Transmission Date: 20201103
  Serious: Yes (Death, Hospitalization)
  Sender: FDA-Public Use
  Company Number: DE-MYLANLABS-2020M1076361

PATIENT
  Age: 74 Year
  Sex: Female

DRUGS (14)
  1. PROSTAVASIN [Concomitant]
     Active Substance: ALPROSTADIL ALFADEX
     Indication: PERIPHERAL ARTERIAL OCCLUSIVE DISEASE
     Dosage: UNK
  2. TORASEMIDE [Concomitant]
     Active Substance: TORSEMIDE
     Dosage: UNK
  3. MARCUMAR [Concomitant]
     Active Substance: PHENPROCOUMON
     Dosage: UNK
  4. PREDNISOLON                        /00016201/ [Concomitant]
     Active Substance: PREDNISOLONE
     Dosage: UNK
  5. TOCILIZUMAB. [Suspect]
     Active Substance: TOCILIZUMAB
     Indication: RHEUMATOID ARTHRITIS
     Dosage: 480 MILLIGRAM, Q28D
     Route: 065
     Dates: start: 201209
  6. SIMVASTATIN. [Concomitant]
     Active Substance: SIMVASTATIN
     Dosage: UNK
  7. CALCIUM [Concomitant]
     Active Substance: CALCIUM
     Dosage: UNK
  8. VOTUM                              /01635402/ [Concomitant]
     Active Substance: OLMESARTAN MEDOXOMIL
     Dosage: UNK
  9. METHOTREXATE. [Suspect]
     Active Substance: METHOTREXATE
     Dosage: 7.5 MILLIGRAM
     Route: 065
  10. MABTHERA [Suspect]
     Active Substance: RITUXIMAB
     Indication: RHEUMATOID ARTHRITIS
     Dosage: 100 MILLIGRAM
     Route: 042
     Dates: start: 201101
  11. OMEPRAZOLE. [Concomitant]
     Active Substance: OMEPRAZOLE
     Dosage: UNK
  12. METOPROLOL. [Concomitant]
     Active Substance: METOPROLOL
     Dosage: UNK
     Route: 065
  13. METHOTREXATE. [Suspect]
     Active Substance: METHOTREXATE
     Indication: PRODUCT USED FOR UNKNOWN INDICATION
     Dosage: 16 MILLIGRAM
     Route: 065
  14. L?THYROXIN                         /00068001/ [Concomitant]
     Active Substance: LEVOTHYROXINE
     Dosage: UNK

REACTIONS (6)
  - Angina pectoris [Recovered/Resolved]
  - Joint range of motion decreased [Not Recovered/Not Resolved]
  - Impaired healing [Unknown]
  - Foot deformity [Not Recovered/Not Resolved]
  - Death [Fatal]
  - Pain [Unknown]

NARRATIVE: CASE EVENT DATE: 20140116
